FAERS Safety Report 20670518 (Version 1)
Quarter: 2022Q2

REPORT INFORMATION
  Report Type: Spontaneous
  Country: CN (occurrence: CN)
  Receive Date: 20220404
  Receipt Date: 20220404
  Transmission Date: 20220721
  Serious: Yes (Life-Threatening, Hospitalization, Other)
  Sender: FDA-Public Use
  Company Number: CN-BAYER-2022A047633

PATIENT
  Age: 82 Year
  Sex: Male
  Weight: 60 kg

DRUGS (3)
  1. AVELOX [Suspect]
     Active Substance: MOXIFLOXACIN HYDROCHLORIDE
     Indication: Pneumonia bacterial
     Dosage: 0.4 G, QD
     Route: 041
     Dates: start: 20220316, end: 20220316
  2. ASCORBIC ACID [Concomitant]
     Active Substance: ASCORBIC ACID
     Dosage: 2 G, QD
     Route: 041
     Dates: start: 20220316, end: 20220316
  3. DEXTROSE\SODIUM CHLORIDE [Concomitant]
     Active Substance: DEXTROSE\SODIUM CHLORIDE
     Dosage: 500 ML, QD
     Route: 041
     Dates: start: 20220316, end: 20220316

REACTIONS (11)
  - Anaphylactic shock [Recovering/Resolving]
  - Myocardial infarction [None]
  - Pulmonary embolism [None]
  - Cyanosis [None]
  - Piebaldism [None]
  - Tachypnoea [None]
  - Blood pressure increased [None]
  - Irritability [None]
  - Pyrexia [None]
  - Pruritus [Recovering/Resolving]
  - Dyspnoea [Recovering/Resolving]

NARRATIVE: CASE EVENT DATE: 20220316
